FAERS Safety Report 9621326 (Version 3)
Quarter: 2013Q4

REPORT INFORMATION
  Report Type: Spontaneous
  Country: GB (occurrence: GB)
  Receive Date: 20131015
  Receipt Date: 20131104
  Transmission Date: 20140711
  Serious: Yes (Other)
  Sender: FDA-Public Use
  Company Number: PHFR2013GB005739

PATIENT
  Sex: Male

DRUGS (2)
  1. CICLOSPORIN [Suspect]
  2. MYCOPHENOLATE MOFETIL [Suspect]

REACTIONS (3)
  - Graft versus host disease in intestine [Unknown]
  - Diarrhoea [Unknown]
  - Treatment failure [Unknown]
